FAERS Safety Report 10970545 (Version 1)
Quarter: 2015Q1

REPORT INFORMATION
  Report Type: Spontaneous
  Country: US (occurrence: None)
  Receive Date: 20150330
  Receipt Date: 20150330
  Transmission Date: 20150721
  Serious: Yes (Other)
  Sender: FDA-Public Use
  Company Number: None

PATIENT
  Age: 51 Year
  Sex: Female
  Weight: 100 kg

DRUGS (1)
  1. MINIVELLE [Suspect]
     Active Substance: ESTRADIOL
     Indication: HORMONE LEVEL ABNORMAL
     Route: 062
     Dates: start: 201502, end: 201503

REACTIONS (5)
  - Affective disorder [None]
  - Drug effect decreased [None]
  - Asthenia [None]
  - Device malfunction [None]
  - Energy increased [None]

NARRATIVE: CASE EVENT DATE: 20150227
